FAERS Safety Report 7346764-9 (Version None)
Quarter: 2011Q1

REPORT INFORMATION
  Report Type: 
  Country: None (occurrence: None)
  Receive Date: 20110302
  Receipt Date: 20081204
  Transmission Date: 20110831
  Serious: Yes (Disabling)
  Sender: FDA-Public Use
  Company Number: UK-2008-00454

PATIENT
  Age: 49 Year
  Sex: Male

DRUGS (3)
  1. SIMVASTATIN [Suspect]
     Indication: HYPERCHOLESTEROLAEMIA
     Dosage: 40 MG (40 MG), ORAL
     Route: 048
     Dates: start: 20081111, end: 20081119
  2. TRIMETHOPRIM [Concomitant]
  3. CITALOPRAM [Concomitant]

REACTIONS (1)
  - URINARY RETENTION [None]
